FAERS Safety Report 5953838-3 (Version None)
Quarter: 2008Q4

REPORT INFORMATION
  Report Type: 
  Country: None (occurrence: None)
  Receive Date: 20081114
  Receipt Date: 20081104
  Transmission Date: 20090506
  Serious: Yes (Other)
  Sender: FDA-Public Use
  Company Number: AU-ELI_LILLY_AND_COMPANY-AU200809003334

PATIENT
  Sex: Female
  Weight: 57 kg

DRUGS (1)
  1. CYMBALTA [Suspect]
     Indication: POST-TRAUMATIC STRESS DISORDER
     Dosage: 60 MG, ONLY ONE DOSE TAKEN
     Route: 065
     Dates: start: 20080902, end: 20080902

REACTIONS (15)
  - ABDOMINAL PAIN UPPER [None]
  - DIZZINESS [None]
  - DRY SKIN [None]
  - ERYTHEMA [None]
  - HEADACHE [None]
  - LIP SWELLING [None]
  - MALAISE [None]
  - NAUSEA [None]
  - PARAESTHESIA [None]
  - PRURITUS [None]
  - RETCHING [None]
  - SENSATION OF HEAVINESS [None]
  - SOMNOLENCE [None]
  - SWOLLEN TONGUE [None]
  - VOMITING [None]
